FAERS Safety Report 6453913-3 (Version None)
Quarter: 2009Q4

REPORT INFORMATION
  Report Type: 
  Country: None (occurrence: None)
  Receive Date: 20091117
  Receipt Date: 20091104
  Transmission Date: 20100525
  Serious: Yes (Hospitalization, Other)
  Sender: FDA-Public Use
  Company Number: TPA2009A03567

PATIENT
  Age: 84 Year
  Sex: Male

DRUGS (5)
  1. ULORIC [Suspect]
     Indication: GOUT
     Dates: start: 20090916
  2. REVLIMID [Suspect]
     Indication: GOUT
     Dosage: 10 MG, 1 IN 1 D, PER ORAL
     Route: 048
     Dates: start: 20090730, end: 20091006
  3. PREDNISONE (PREONISONE) [Concomitant]
  4. INSULIN (INSULIN) [Concomitant]
  5. TOPROL-XL [Concomitant]

REACTIONS (3)
  - PYREXIA [None]
  - RASH [None]
  - THROMBOCYTOPENIA [None]
